FAERS Safety Report 4564050-7 (Version None)
Quarter: 2005Q1

REPORT INFORMATION
  Report Type: 
  Country: None (occurrence: None)
  Receive Date: 20050126
  Receipt Date: 20050110
  Transmission Date: 20050727
  Serious: Yes (Death)
  Sender: FDA-Public Use
  Company Number: 8008348

PATIENT
  Age: 19 Year
  Sex: Female

DRUGS (6)
  1. KEPPRA [Suspect]
     Indication: EPILEPSY
     Dosage: 2 G /D PO
     Route: 048
     Dates: start: 20021113, end: 20030801
  2. TRILEPTAL [Suspect]
     Indication: EPILEPSY
     Dosage: 1200 MG PO
     Route: 048
  3. CHLORPROTHIXEN [Suspect]
     Indication: PAROXYSMAL PERCEPTUAL ALTERATION
     Dosage: 30 MG 1/D PO
     Route: 048
  4. CHLORPROTHIXEN [Suspect]
     Indication: RESTLESSNESS
     Dosage: 30 MG 1/D PO
     Route: 048
  5. TOPIRAMATE [Suspect]
     Indication: EPILEPSY
     Dates: start: 20030801
  6. TOPIRAMATE [Concomitant]

REACTIONS (3)
  - CONVULSION [None]
  - MYOCARDITIS [None]
  - SUDDEN DEATH [None]
